FAERS Safety Report 4884749-2 (Version None)
Quarter: 2005Q4

REPORT INFORMATION
  Report Type: 
  Country: None (occurrence: None)
  Receive Date: 20051201
  Receipt Date: 20050922
  Transmission Date: 20060501
  Serious: No
  Sender: FDA-Public Use
  Company Number: 2005PV002438

PATIENT
  Age: 70 Year
  Sex: Female
  Weight: 81.6475 kg

DRUGS (3)
  1. BYETTA [Suspect]
     Indication: DIABETES MELLITUS NON-INSULIN-DEPENDENT
     Dosage: 5 MCG;QD;SC
     Route: 058
     Dates: start: 20050914, end: 20050921
  2. AMARYL [Concomitant]
  3. LANTUS [Concomitant]

REACTIONS (4)
  - BLOOD GLUCOSE DECREASED [None]
  - FEELING JITTERY [None]
  - HYPERHIDROSIS [None]
  - HYPOAESTHESIA ORAL [None]
